FAERS Safety Report 25481307 (Version 1)
Quarter: 2025Q2

REPORT INFORMATION
  Report Type: Spontaneous
  Country: FR (occurrence: FR)
  Receive Date: 20250626
  Receipt Date: 20250626
  Transmission Date: 20250716
  Serious: Yes (Life-Threatening, Other)
  Sender: SANDOZ
  Company Number: FR-ROCHE-2529055

PATIENT
  Age: 71 Year
  Sex: Male

DRUGS (19)
  1. BENDAMUSTINE [Suspect]
     Active Substance: BENDAMUSTINE
     Indication: Chronic lymphocytic leukaemia
     Route: 050
     Dates: start: 201604, end: 201605
  2. BENDAMUSTINE [Suspect]
     Active Substance: BENDAMUSTINE
     Indication: Chronic lymphocytic leukaemia
  3. CYCLOPHOSPHAMIDE [Suspect]
     Active Substance: CYCLOPHOSPHAMIDE
     Indication: Chronic lymphocytic leukaemia
     Route: 065
     Dates: start: 201404
  4. FLUDARABINE [Suspect]
     Active Substance: FLUDARABINE PHOSPHATE
     Indication: Chronic lymphocytic leukaemia
     Route: 065
     Dates: start: 201404
  5. RITUXIMAB [Suspect]
     Active Substance: RITUXIMAB
     Route: 050
     Dates: start: 201604, end: 201605
  6. RITUXIMAB [Suspect]
     Active Substance: RITUXIMAB
     Route: 042
     Dates: start: 201404
  7. RITUXIMAB [Suspect]
     Active Substance: RITUXIMAB
     Indication: Chronic lymphocytic leukaemia
     Route: 041
     Dates: start: 201404
  8. IBRUTINIB [Concomitant]
     Active Substance: IBRUTINIB
     Indication: Product used for unknown indication
     Route: 065
  9. METHOTREXATE [Concomitant]
     Active Substance: METHOTREXATE
     Indication: Leukaemia recurrent
     Route: 042
  10. METHOTREXATE [Concomitant]
     Active Substance: METHOTREXATE
     Route: 042
  11. PREDNISONE [Concomitant]
     Active Substance: PREDNISONE
     Indication: Leukaemia recurrent
     Route: 048
  12. VENETOCLAX [Concomitant]
     Active Substance: VENETOCLAX
     Indication: Product used for unknown indication
     Dosage: 1 MG, QD
     Route: 065
  13. VENETOCLAX [Concomitant]
     Active Substance: VENETOCLAX
     Route: 065
  14. VENETOCLAX [Concomitant]
     Active Substance: VENETOCLAX
     Dosage: 20 MG, QD
     Route: 065
  15. VENETOCLAX [Concomitant]
     Active Substance: VENETOCLAX
     Route: 065
  16. VENETOCLAX [Concomitant]
     Active Substance: VENETOCLAX
     Route: 065
  17. LACOSAMIDE [Interacting]
     Active Substance: LACOSAMIDE
     Indication: Product used for unknown indication
     Route: 065
  18. LEVETIRACETAM [Interacting]
     Active Substance: LEVETIRACETAM
     Indication: Product used for unknown indication
     Route: 065
  19. VALPROMIDE [Interacting]
     Active Substance: VALPROMIDE
     Indication: Product used for unknown indication
     Route: 065

REACTIONS (5)
  - Neutropenia [Unknown]
  - Cytopenia [Unknown]
  - Thrombocytopenia [Unknown]
  - Anaemia [Unknown]
  - Drug interaction [Unknown]

NARRATIVE: CASE EVENT DATE: 20160101
